FAERS Safety Report 7937419-8 (Version None)
Quarter: 2011Q4

REPORT INFORMATION
  Report Type: 
  Country: None (occurrence: None)
  Receive Date: 20111123
  Receipt Date: 20111116
  Transmission Date: 20120403
  Serious: Yes (Other)
  Sender: FDA-Public Use
  Company Number: US-UCBSA-038917

PATIENT
  Age: 67 Year
  Sex: Male
  Weight: 77.1 kg

DRUGS (5)
  1. LISINOPRIL [Concomitant]
     Indication: BLOOD PRESSURE
     Dosage: 2 MONTHS
     Route: 048
  2. OXYCODONE HCL [Concomitant]
     Indication: SPONDYLITIS
     Dosage: NO. OF INTAKES PER DAY IS 2-3, TOTAL DAILY DOSE: 20-30 MG
     Route: 048
     Dates: start: 20100801
  3. CIMZIA [Suspect]
     Indication: CROHN'S DISEASE
     Dosage: BEEN ON BOTH PFS AND LYOPHILIZED
     Route: 058
     Dates: start: 20101009
  4. CIMZIA [Suspect]
     Route: 058
     Dates: start: 20110715
  5. METOPROLOL TARTRATE [Concomitant]
     Indication: BLOOD PRESSURE
     Dosage: 5 YEARS
     Route: 048

REACTIONS (14)
  - HOT FLUSH [None]
  - FATIGUE [None]
  - ARTHRALGIA [None]
  - CANDIDIASIS [None]
  - DYSPHONIA [None]
  - FLANK PAIN [None]
  - MUSCULAR WEAKNESS [None]
  - HYPERHIDROSIS [None]
  - DYSPNOEA [None]
  - ASTHENIA [None]
  - DECREASED APPETITE [None]
  - SINUS CONGESTION [None]
  - SINUS HEADACHE [None]
  - CROHN'S DISEASE [None]
